FAERS Safety Report 19947626 (Version 1)
Quarter: 2021Q4

REPORT INFORMATION
  Report Type: Spontaneous
  Country: US (occurrence: US)
  Receive Date: 20211013
  Receipt Date: 20211013
  Transmission Date: 20220303
  Serious: Yes (Other)
  Sender: FDA-Public Use
  Company Number: US-HIKMA PHARMACEUTICALS USA INC.-US-H14001-20-05808

PATIENT
  Age: 79 Year
  Sex: Female

DRUGS (2)
  1. INFUMORPH [Suspect]
     Active Substance: MORPHINE SULFATE
     Indication: Spinal pain
     Route: 037
  2. INFUMORPH [Suspect]
     Active Substance: MORPHINE SULFATE
     Dosage: .20014 MG/DAY (.00834 MG/HR)
     Route: 037

REACTIONS (1)
  - Urinary retention [Recovered/Resolved]

NARRATIVE: CASE EVENT DATE: 20201217
